FAERS Safety Report 7419928-3 (Version None)
Quarter: 2011Q2

REPORT INFORMATION
  Report Type: 
  Country: None (occurrence: None)
  Receive Date: 20110418
  Receipt Date: 20110407
  Transmission Date: 20111010
  Serious: Yes (Other)
  Sender: FDA-Public Use
  Company Number: DE-BIOGENIDEC-2011BI007323

PATIENT
  Age: 37 Year
  Sex: Female
  Weight: 65 kg

DRUGS (2)
  1. TYSABRI [Suspect]
     Indication: RELAPSING-REMITTING MULTIPLE SCLEROSIS
     Route: 042
     Dates: start: 20070101, end: 20100201
  2. TYSABRI [Suspect]
     Dosage: FROM APPROXIMATELY 17 WEEKS GESTATION UNTIL DELIVERY
     Route: 042
     Dates: start: 20100801

REACTIONS (1)
  - PLACENTAL INSUFFICIENCY [None]
